FAERS Safety Report 9905313 (Version 1)
Quarter: 2014Q1

REPORT INFORMATION
  Report Type: Other
  Country: US (occurrence: US)
  Receive Date: 20140218
  Receipt Date: 20140218
  Transmission Date: 20141002
  Serious: No
  Sender: FDA-Public Use
  Company Number: US-ENDO PHARMACEUTICALS INC.-METO20130045

PATIENT
  Sex: Female

DRUGS (2)
  1. METOCLOPRAMIDE HYDROCHLORIDE [Suspect]
     Indication: PRODUCT USED FOR UNKNOWN INDICATION
     Route: 048
     Dates: start: 200706, end: 200903
  2. METOCLOPRAMIDE HYDROCHLORIDE [Suspect]
     Dosage: UNK
     Route: 048
     Dates: start: 2001, end: 200706

REACTIONS (7)
  - Tardive dyskinesia [Not Recovered/Not Resolved]
  - Depression [Not Recovered/Not Resolved]
  - Anxiety [Not Recovered/Not Resolved]
  - Tremor [Not Recovered/Not Resolved]
  - Stereotypy [Not Recovered/Not Resolved]
  - Akathisia [Not Recovered/Not Resolved]
  - Incorrect drug administration duration [Recovered/Resolved]
